FAERS Safety Report 9635737 (Version 4)
Quarter: 2014Q1

REPORT INFORMATION
  Report Type: Report from Study
  Country: NL (occurrence: NL)
  Receive Date: 20131021
  Receipt Date: 20140210
  Transmission Date: 20141002
  Serious: Yes (Hospitalization)
  Sender: FDA-Public Use
  Company Number: NL-GLAXOSMITHKLINE-Z0021392A

PATIENT
  Age: 68 Year
  Sex: Male
  Weight: 94.4 kg

DRUGS (2)
  1. DABRAFENIB [Suspect]
     Indication: NON-SMALL CELL LUNG CANCER
     Dosage: 150MG TWICE PER DAY
     Route: 048
     Dates: start: 20130528
  2. METFORMINE [Concomitant]
     Indication: TYPE 2 DIABETES MELLITUS
     Dosage: 850MG THREE TIMES PER DAY

REACTIONS (3)
  - Hyperglycaemia [Recovered/Resolved]
  - Urinary retention [Recovered/Resolved]
  - Furuncle [Recovered/Resolved]
